FAERS Safety Report 5871132-6 (Version None)
Quarter: 2008Q3

REPORT INFORMATION
  Report Type: 
  Country: None (occurrence: None)
  Receive Date: 20080904
  Receipt Date: 20080823
  Transmission Date: 20090109
  Serious: Yes (Death, Life-Threatening, Other)
  Sender: FDA-Public Use
  Company Number: CN-PFIZER INC-2008071407

PATIENT
  Age: 58 Year
  Sex: Male

DRUGS (17)
  1. VFEND [Suspect]
     Indication: CANDIDIASIS
     Route: 042
  2. VFEND [Suspect]
     Route: 042
  3. DIFLUCAN [Suspect]
     Indication: FUNGAL INFECTION
     Route: 042
     Dates: start: 20080811, end: 20080811
  4. DIFLUCAN [Suspect]
     Route: 042
     Dates: start: 20080812, end: 20080813
  5. IRESSA [Concomitant]
     Dates: start: 20080101, end: 20080801
  6. INTRALIPID 10% [Concomitant]
     Dates: start: 20080101, end: 20080801
  7. ESSENTIALE FORTE [Concomitant]
     Dates: start: 20080101, end: 20080801
  8. ALL OTHER THERAPEUTIC PRODUCTS [Concomitant]
     Dates: start: 20080101, end: 20080801
  9. ALBUMIN (HUMAN) [Concomitant]
     Dates: start: 20080101, end: 20080801
  10. SULPERAZON [Concomitant]
     Route: 042
     Dates: start: 20080101, end: 20080801
  11. AMINOPHYLLINE [Concomitant]
     Dates: start: 20080101, end: 20080801
  12. OMEPRAZOLE [Concomitant]
     Dates: start: 20080101, end: 20080801
  13. ALL OTHER THERAPEUTIC PRODUCTS [Concomitant]
     Dates: start: 20080101, end: 20080801
  14. PANTOPRAZOLE [Concomitant]
     Dates: start: 20080101, end: 20080801
  15. ALL OTHER THERAPEUTIC PRODUCTS [Concomitant]
     Dates: start: 20080101, end: 20080801
  16. ADDAMEL [Concomitant]
     Dates: start: 20080101, end: 20080801
  17. PIPERACILLIN AND TAZOBACTAM [Concomitant]
     Dates: start: 20080101, end: 20080801

REACTIONS (5)
  - ACUTE HEPATIC FAILURE [None]
  - COMA [None]
  - GASTROINTESTINAL HAEMORRHAGE [None]
  - OBSTRUCTION [None]
  - RENAL FAILURE ACUTE [None]
